FAERS Safety Report 25147055 (Version 1)
Quarter: 2025Q2

REPORT INFORMATION
  Report Type: Spontaneous
  Country: US (occurrence: US)
  Receive Date: 20250401
  Receipt Date: 20250401
  Transmission Date: 20250716
  Serious: No
  Sender: MERCK SHARP AND DOHME
  Company Number: US-009507513-2264212

PATIENT
  Age: 66 Year
  Sex: Male

DRUGS (3)
  1. IMIPENEM [Suspect]
     Active Substance: IMIPENEM
     Indication: Mycobacterium chelonae infection
     Route: 042
  2. AZITHROMYCIN [Concomitant]
     Active Substance: AZITHROMYCIN
     Indication: Mycobacterium chelonae infection
  3. TOBRAMYCIN [Concomitant]
     Active Substance: TOBRAMYCIN
     Indication: Mycobacterium chelonae infection
     Route: 042

REACTIONS (1)
  - Product use in unapproved indication [Unknown]
